FAERS Safety Report 5360793-6 (Version None)
Quarter: 2007Q2

REPORT INFORMATION
  Report Type: 
  Country: None (occurrence: None)
  Receive Date: 20070618
  Receipt Date: 20070612
  Transmission Date: 20071010
  Serious: Yes (Other)
  Sender: FDA-Public Use
  Company Number: US-ASTRAZENECA-2007UW13619

PATIENT
  Age: 83 Year
  Sex: Female
  Weight: 52.2 kg

DRUGS (8)
  1. RHINOCORT [Suspect]
     Indication: HYPERSENSITIVITY
     Route: 045
     Dates: start: 20070401
  2. PRAVACHOL [Concomitant]
     Indication: BLOOD CHOLESTEROL
  3. ASPIRIN [Concomitant]
  4. CHINESE HERBS [Concomitant]
     Indication: BLOOD CHOLESTEROL
  5. SALINE NASAL SPRAY [Concomitant]
     Indication: HYPERSENSITIVITY
  6. COSOPT [Concomitant]
     Indication: GLAUCOMA
  7. XALATAN [Concomitant]
     Indication: GLAUCOMA
  8. VERAPAMIL [Concomitant]
     Indication: BLOOD PRESSURE

REACTIONS (2)
  - BLINDNESS [None]
  - EYE DISORDER [None]
